FAERS Safety Report 14375613 (Version 1)
Quarter: 2018Q1

REPORT INFORMATION
  Report Type: Spontaneous
  Country: US (occurrence: US)
  Receive Date: 20180110
  Receipt Date: 20180110
  Transmission Date: 20180509
  Serious: Yes (Other)
  Sender: FDA-Public Use
  Company Number: None

PATIENT
  Age: 67 Year
  Sex: Female
  Weight: 79.2 kg

DRUGS (4)
  1. STIOLTO RESPIMAT [Suspect]
     Active Substance: OLODATEROL HYDROCHLORIDE\TIOTROPIUM BROMIDE MONOHYDRATE
     Indication: RESPIRATORY DISTRESS
     Dosage: ?          QUANTITY:28 INHALATION(S);OTHER FREQUENCY:2 SPRAYS 1X/DAY;?
     Route: 055
     Dates: start: 20171208, end: 20171214
  2. ORGANIC, PHARMACEUTICAL GRADE WHOLE FOOD MULTIVITAMIN WITH NO IRON [Concomitant]
  3. PROBIOTICS [Concomitant]
     Active Substance: PROBIOTICS NOS
  4. B-12 ORAL SPRAY [Concomitant]

REACTIONS (4)
  - Movement disorder [None]
  - Abnormal dreams [None]
  - Drug ineffective [None]
  - Anxiety [None]

NARRATIVE: CASE EVENT DATE: 20171211
